FAERS Safety Report 9803005 (Version 2)
Quarter: 2014Q1

REPORT INFORMATION
  Report Type: Spontaneous
  Country: US (occurrence: None)
  Receive Date: 20140102
  Receipt Date: 20140115
  Transmission Date: 20141002
  Serious: Yes (Death)
  Sender: FDA-Public Use
  Company Number: UTC-042445

PATIENT
  Age: 65 Year
  Sex: Female
  Weight: 83.2 kg

DRUGS (3)
  1. REMODULIN (2.5 MILLIGRAM / MILLILITERS, INJECTION FOR INFUSION) (TREPROSTINIL SODIUM) [Suspect]
     Indication: COR PULMONALE CHRONIC
     Dosage: 53.28 UG/KG (0.037 UG/KG, 1 IN 1 MIN)
     Route: 041
     Dates: start: 20120928
  2. WARFARIN [Concomitant]
  3. REVATIO (SILDENAFIL CITRATE) [Concomitant]

REACTIONS (2)
  - Death [None]
  - Pulmonary hypertension [None]
